FAERS Safety Report 25129575 (Version 2)
Quarter: 2025Q2

REPORT INFORMATION
  Report Type: Report from Study
  Country: ZA (occurrence: ZA)
  Receive Date: 20250327
  Receipt Date: 20250613
  Transmission Date: 20250716
  Serious: Yes (Death)
  Sender: ROCHE
  Company Number: ZA-ROCHE-10000242869

PATIENT
  Age: 51 Year
  Sex: Male

DRUGS (2)
  1. VABYSMO [Suspect]
     Active Substance: FARICIMAB-SVOA
     Indication: Macular degeneration
     Route: 050
     Dates: start: 20241205, end: 20250211
  2. VABYSMO [Suspect]
     Active Substance: FARICIMAB-SVOA
     Indication: Type 1 diabetes mellitus

REACTIONS (2)
  - Renal failure [Fatal]
  - Diabetic nephropathy [Fatal]
